FAERS Safety Report 9620816 (Version 1)
Quarter: 2013Q4

REPORT INFORMATION
  Report Type: Spontaneous
  Country: KR (occurrence: KR)
  Receive Date: 20131015
  Receipt Date: 20131015
  Transmission Date: 20140711
  Serious: Yes (Hospitalization)
  Sender: FDA-Public Use
  Company Number: KR-ALVOGEN-2013AL002246

PATIENT
  Age: 75 Year
  Sex: Female

DRUGS (10)
  1. OXYCODONE [Suspect]
     Indication: PROCEDURAL PAIN
  2. PREGABALIN [Suspect]
     Indication: PROCEDURAL PAIN
     Route: 048
  3. ROCURONIUM [Concomitant]
     Indication: ANAESTHESIA
  4. FENTANYL [Concomitant]
     Indication: PROCEDURAL PAIN
     Route: 042
  5. KETOROLAC [Concomitant]
     Indication: PROCEDURAL PAIN
     Route: 042
  6. RAMOSETRON [Concomitant]
     Indication: PROCEDURAL NAUSEA
     Route: 042
  7. RAMOSETRON [Concomitant]
     Indication: PROCEDURAL VOMITING
     Route: 042
  8. CELECOXIB [Concomitant]
     Indication: PROCEDURAL PAIN
  9. PROPOFOL [Concomitant]
     Indication: ANAESTHESIA
  10. DESFLURANE [Concomitant]
     Indication: ANAESTHESIA

REACTIONS (2)
  - Serotonin syndrome [Recovered/Resolved]
  - Drug interaction [Recovered/Resolved]
